FAERS Safety Report 6427603-7 (Version None)
Quarter: 2009Q4

REPORT INFORMATION
  Report Type: 
  Country: None (occurrence: None)
  Receive Date: 20091027
  Receipt Date: 20091013
  Transmission Date: 20100525
  Serious: Yes (Death)
  Sender: FDA-Public Use
  Company Number: 2005025023

PATIENT
  Age: 9 Month
  Sex: Male

DRUGS (6)
  1. PSEUDOEPHEDRINE HCL [Suspect]
     Dosage: ORAL
     Route: 048
  2. DEXTROMETHORPHAN HYDROBROMIDE [Suspect]
     Dosage: ORAL
     Route: 048
  3. PARACETAMOL (PARACETAMOL) [Suspect]
     Dosage: ORAL
     Route: 048
  4. MOTRIN [Suspect]
     Dosage: 3/4 DROPPERFUL, ORAL
     Route: 048
  5. CHLORPHENIRAMINE MALEATE [Suspect]
     Dosage: ORAL
     Route: 048
  6. PHENYLPROPANOLAMINE HCL [Suspect]
     Dosage: ORAL
     Route: 048

REACTIONS (6)
  - ACCIDENTAL POISONING [None]
  - BLOOD GLUCOSE DECREASED [None]
  - BLOOD POTASSIUM INCREASED [None]
  - BLOOD SODIUM INCREASED [None]
  - CARDIO-RESPIRATORY ARREST [None]
  - DRUG TOXICITY [None]
